FAERS Safety Report 7120646-X (Version None)
Quarter: 2010Q4

REPORT INFORMATION
  Report Type: 
  Country: None (occurrence: None)
  Receive Date: 20101124
  Receipt Date: 20101118
  Transmission Date: 20110411
  Serious: Yes (Hospitalization)
  Sender: FDA-Public Use
  Company Number: US-US-EMD SERONO, INC.-7028502

PATIENT
  Sex: Female

DRUGS (2)
  1. REBIF [Suspect]
     Indication: MULTIPLE SCLEROSIS
     Route: 058
     Dates: start: 20100527, end: 20100101
  2. REBIF [Suspect]
     Route: 058
     Dates: start: 20101001

REACTIONS (3)
  - MIGRAINE [None]
  - MULTIPLE SCLEROSIS RELAPSE [None]
  - NAUSEA [None]
